FAERS Safety Report 22114341 (Version 4)
Quarter: 2023Q2

REPORT INFORMATION
  Report Type: Report from Study
  Country: US (occurrence: US)
  Receive Date: 20230320
  Receipt Date: 20230616
  Transmission Date: 20230722
  Serious: Yes (Hospitalization, Other)
  Sender: FDA-Public Use
  Company Number: US-ARGENX-2023-ARGX-US000836

PATIENT

DRUGS (1)
  1. VYVGART [Suspect]
     Active Substance: EFGARTIGIMOD ALFA-FCAB
     Indication: Myasthenia gravis
     Dosage: 10 MG/KG
     Route: 042
     Dates: start: 20221003

REACTIONS (15)
  - Motor dysfunction [Unknown]
  - Visual impairment [Unknown]
  - Hypertensive crisis [Unknown]
  - Thrombosis [Unknown]
  - Therapeutic product effect decreased [Unknown]
  - Poor peripheral circulation [Unknown]
  - Haematoma [Unknown]
  - Insomnia [Unknown]
  - Myasthenia gravis [Unknown]
  - Red blood cell count increased [Unknown]
  - Peripheral coldness [Unknown]
  - Paraesthesia [Unknown]
  - Musculoskeletal stiffness [Unknown]
  - Muscular weakness [Unknown]
  - Dyspnoea [Unknown]

NARRATIVE: CASE EVENT DATE: 20230510
